FAERS Safety Report 7219893-8 (Version None)
Quarter: 2011Q1

REPORT INFORMATION
  Report Type: 
  Country: None (occurrence: None)
  Receive Date: 20110111
  Receipt Date: 20110104
  Transmission Date: 20110831
  Serious: Yes (Life-Threatening, Other)
  Sender: FDA-Public Use
  Company Number: PHHY2011BR01263

PATIENT
  Age: 36 Year
  Sex: Female

DRUGS (2)
  1. PARLODEL [Suspect]
     Indication: PITUITARY TUMOUR
     Dosage: 2.5 MG, ONE TABLET A DAY
     Dates: start: 19990101
  2. PARLODEL [Suspect]
     Dosage: 2.5 MG, BID (TUESDAYS, WEDNESDAYS, FRIDAYS, SATURDAYS AND SUNDAYS)

REACTIONS (10)
  - ABDOMINAL PAIN UPPER [None]
  - DECREASED APPETITE [None]
  - DIZZINESS [None]
  - NAUSEA [None]
  - WEIGHT DECREASED [None]
  - BLOOD PRESSURE DECREASED [None]
  - FEELING ABNORMAL [None]
  - BLOOD PROLACTIN INCREASED [None]
  - SYNCOPE [None]
  - HEADACHE [None]
